FAERS Safety Report 7535566-6 (Version None)
Quarter: 2011Q2

REPORT INFORMATION
  Report Type: 
  Country: None (occurrence: None)
  Receive Date: 20110609
  Receipt Date: 20110601
  Transmission Date: 20111010
  Serious: Yes (Other)
  Sender: FDA-Public Use
  Company Number: US-JNJFOC-20110600979

PATIENT
  Sex: Female

DRUGS (9)
  1. INVEGA SUSTENNA [Suspect]
     Indication: SCHIZOPHRENIA
     Route: 030
     Dates: start: 20110523, end: 20110523
  2. HYDROCHLORTHIAZID [Concomitant]
     Indication: BLOOD PRESSURE
     Route: 065
  3. TOLTERODINE TARTRATE [Concomitant]
     Indication: URINARY INCONTINENCE
     Route: 065
  4. INVEGA SUSTENNA [Suspect]
     Route: 030
     Dates: start: 20101101, end: 20101101
  5. DILANTIN [Concomitant]
     Indication: BLOOD PRESSURE
     Route: 048
  6. UNKNOWN MEDICATION [Concomitant]
     Route: 065
  7. PAIN MEDICATION NOS [Concomitant]
     Indication: PAIN
     Route: 065
  8. LYRICA [Concomitant]
     Indication: CONVULSION
     Route: 065
  9. TRAZADOL [Concomitant]
     Indication: SLEEP DISORDER
     Route: 065

REACTIONS (1)
  - TRANSIENT ISCHAEMIC ATTACK [None]
